FAERS Safety Report 4852927-4 (Version None)
Quarter: 2005Q4

REPORT INFORMATION
  Report Type: 
  Country: None (occurrence: None)
  Receive Date: 20051212
  Receipt Date: 20051128
  Transmission Date: 20060501
  Serious: Yes (Other)
  Sender: FDA-Public Use
  Company Number: 2005162878

PATIENT

DRUGS (3)
  1. MINIPRESS [Suspect]
     Indication: ILL-DEFINED DISORDER
     Dosage: ORAL
     Route: 048
  2. LOXONIN (LOXOPROFEN SODIUM) [Suspect]
     Indication: ILL-DEFINED DISORDER
  3. ANTIINFLAMMATORY / ANTIRHEUMATIC NON-STEROIDS (ANTIINFLAMMATORY / ANTI [Concomitant]

REACTIONS (1)
  - INTERSTITIAL LUNG DISEASE [None]
